FAERS Safety Report 11679817 (Version 2)
Quarter: 2015Q4

REPORT INFORMATION
  Report Type: Spontaneous
  Country: US (occurrence: US)
  Receive Date: 20151027
  Receipt Date: 20151104
  Transmission Date: 20160304
  Serious: No
  Sender: FDA-Public Use
  Company Number: US-ELI_LILLY_AND_COMPANY-US201010002668

PATIENT
  Age: 77 Year
  Sex: Female

DRUGS (23)
  1. TAMOXIFEN [Concomitant]
     Active Substance: TAMOXIFEN
     Dosage: 20 MG, DAILY (1/D)
  2. VITAMIN B12 [Concomitant]
     Active Substance: CYANOCOBALAMIN
     Dosage: 3000 UG, DAILY (1/D)
     Route: 060
  3. FISH OIL [Concomitant]
     Active Substance: FISH OIL
  4. CHONDROITIN [Concomitant]
     Active Substance: CHONDROITIN
     Dosage: 1200 MG, DAILY (1/D)
  5. CYSTEINE [Concomitant]
     Active Substance: CYSTEINE
     Dosage: UNK, 2/D
  6. FORTEO [Suspect]
     Active Substance: TERIPARATIDE
     Dosage: 20 UG, DAILY (1/D)
  7. FORTEO [Suspect]
     Active Substance: TERIPARATIDE
     Dosage: 20 UG, DAILY (1/D)
     Dates: end: 20101227
  8. CENTRUM SILVER [Concomitant]
     Active Substance: MINERALS\VITAMINS
     Dosage: UNK, DAILY (1/D)
  9. GLUCOSAMINE [Concomitant]
     Active Substance: GLUCOSAMINE
     Dosage: 2000 MG, DAILY (1/D)
  10. CITRACAL [Concomitant]
     Active Substance: CALCIUM CITRATE
  11. VITAMIN C [Concomitant]
     Active Substance: ASCORBIC ACID
     Dosage: 500 MG, 2/D
  12. VITAMIN D [Concomitant]
     Active Substance: CHOLECALCIFEROL
     Dosage: 50000 U, WEEKLY (1/W)
  13. GENISTEIN [Concomitant]
     Active Substance: GENISTEIN
  14. FORTEO [Suspect]
     Active Substance: TERIPARATIDE
     Indication: OSTEOPOROSIS
     Dosage: 20 UG, DAILY (1/D)
     Dates: start: 20101006
  15. FORTEO [Suspect]
     Active Substance: TERIPARATIDE
     Dosage: 20 UG, DAILY (1/D)
     Dates: start: 20101228, end: 20101228
  16. DETROL LA [Concomitant]
     Active Substance: TOLTERODINE TARTRATE
     Dosage: 4 MG, DAILY (1/D)
  17. MSM [Concomitant]
     Active Substance: DIMETHYL SULFONE
     Dosage: 500 MG, DAILY (1/D)
  18. VITAMIN D [Concomitant]
     Active Substance: CHOLECALCIFEROL
     Dosage: 400 MG, UNK
  19. COENZYME Q10 [Concomitant]
     Active Substance: UBIDECARENONE
     Dosage: 200 MG, DAILY (1/D)
  20. CLARITIN [Concomitant]
     Active Substance: LORATADINE
     Indication: HYPERSENSITIVITY
     Dosage: 10 MG, DAILY (1/D)
  21. VITAMIN E [Concomitant]
     Active Substance: .ALPHA.-TOCOPHEROL
     Dosage: 400 U, DAILY (1/D)
  22. CALCIUM [Concomitant]
     Active Substance: CALCIUM
     Dosage: 600 MG, UNK
  23. OMEGA 3 FISH OIL [Concomitant]
     Active Substance: FISH OIL\OMEGA-3 FATTY ACIDS
     Dosage: 1200 MG, DAILY (1/D)

REACTIONS (9)
  - Burning sensation [Recovered/Resolved]
  - Rhinorrhoea [Not Recovered/Not Resolved]
  - Adverse drug reaction [Recovered/Resolved]
  - Contusion [Recovering/Resolving]
  - Fracture [Recovering/Resolving]
  - Palpitations [Recovered/Resolved]
  - Erythema [Recovering/Resolving]
  - Back pain [Unknown]
  - Fall [Recovered/Resolved]

NARRATIVE: CASE EVENT DATE: 201010
